FAERS Safety Report 4290281-X (Version None)
Quarter: 2004Q1

REPORT INFORMATION
  Report Type: 
  Country: None (occurrence: None)
  Receive Date: 20040209
  Receipt Date: 20040128
  Transmission Date: 20041129
  Serious: Yes (Life-Threatening, Other)
  Sender: FDA-Public Use
  Company Number: US-SHR-03-015769

PATIENT
  Age: 58 Year
  Sex: Female
  Weight: 92 kg

DRUGS (5)
  1. REFLUDAN [Suspect]
     Indication: HEPARIN-INDUCED THROMBOCYTOPENIA
     Dosage: INTRAVENOUS
     Route: 042
     Dates: start: 20031008, end: 20031010
  2. DIGOXIN [Concomitant]
  3. FUROSEMIDE [Concomitant]
  4. ALBUTEROL [Concomitant]
  5. WARFARIN SODIUM [Concomitant]

REACTIONS (5)
  - ACTIVATED PARTIAL THROMBOPLASTIN TIME PROLONGED [None]
  - BLOOD CREATININE INCREASED [None]
  - CARDIO-RESPIRATORY ARREST [None]
  - CREATININE RENAL CLEARANCE DECREASED [None]
  - HAEMORRHAGE [None]
